FAERS Safety Report 20073932 (Version 1)
Quarter: 2021Q4

REPORT INFORMATION
  Report Type: Report from Study
  Country: DE (occurrence: DE)
  Receive Date: 20211116
  Receipt Date: 20211116
  Transmission Date: 20220303
  Serious: Yes (Other)
  Sender: FDA-Public Use
  Company Number: DE-JNJFOC-20201007685

PATIENT
  Age: 7 Decade
  Sex: Female

DRUGS (4)
  1. PREDNISOLONE [Suspect]
     Active Substance: PREDNISOLONE
     Indication: Plasma cell myeloma
     Dosage: UNK
     Route: 065
  2. MELPHALAN [Suspect]
     Active Substance: MELPHALAN
     Indication: Plasma cell myeloma
     Dosage: UNK
     Route: 065
  3. VELCADE [Suspect]
     Active Substance: BORTEZOMIB
     Indication: Plasma cell myeloma
     Dosage: UNK
     Route: 065
  4. DARATUMUMAB [Suspect]
     Active Substance: DARATUMUMAB
     Indication: Plasma cell myeloma
     Dosage: WEEK 1-1, WEEK 2-1, WEEK 3-DAY1 DAY5, WEEK 4-5, WEEK 5-5 AND WEEK 6-5, WEEK 8 - 6, WEEK 9 - 6,
     Route: 058

REACTIONS (4)
  - Fatigue [Unknown]
  - Polyneuropathy [Unknown]
  - Product use issue [Unknown]
  - Off label use [Unknown]
